FAERS Safety Report 9187788 (Version 1)
Quarter: 2013Q1

REPORT INFORMATION
  Report Type: Spontaneous
  Country: US (occurrence: US)
  Receive Date: 20130325
  Receipt Date: 20130325
  Transmission Date: 20140127
  Serious: No
  Sender: FDA-Public Use
  Company Number: US-MYLANLABS-2012S1008356

PATIENT
  Age: 48 Year
  Sex: Female
  Weight: 81.65 kg

DRUGS (8)
  1. FENTANYL TRANSDERMAL SYSTEM [Suspect]
     Indication: PAIN
     Dosage: Q72HR THEN Q48HR IN JUL-2012
     Route: 062
     Dates: start: 20120419
  2. FENTANYL TRANSDERMAL SYSTEM [Suspect]
     Indication: PAIN
     Dosage: Q72HR THEN Q48HR IN JUL-2012
     Route: 062
     Dates: start: 20120419
  3. ACETAMINOPHEN W/HYDROCODONE BITARTRATE [Concomitant]
     Indication: PAIN
     Dates: start: 201201
  4. INSULIN [Concomitant]
     Indication: DIABETES MELLITUS
     Dosage: SHORT ACTING INSULIN, ONE INJECTION MORNING AND EVENING
     Route: 058
  5. INSULIN [Concomitant]
     Indication: DIABETES MELLITUS
     Dosage: LONG ACTING INSULIN, ONE INJECTION MORNING ANF EVENING
     Route: 058
  6. NAPROSYN [Concomitant]
  7. METFORMIN [Concomitant]
     Indication: DIABETES MELLITUS
  8. ASPIRIN [Concomitant]

REACTIONS (3)
  - Drug ineffective [Not Recovered/Not Resolved]
  - Pain [Not Recovered/Not Resolved]
  - Irritability [Not Recovered/Not Resolved]
